FAERS Safety Report 12304870 (Version 1)
Quarter: 2016Q2

REPORT INFORMATION
  Report Type: Spontaneous
  Country: US (occurrence: US)
  Receive Date: 20160426
  Receipt Date: 20160426
  Transmission Date: 20160815
  Serious: No
  Sender: FDA-Public Use
  Company Number: US-PFIZER INC-2016188862

PATIENT
  Age: 64 Year
  Sex: Female
  Weight: 66.89 kg

DRUGS (1)
  1. GABAPENTIN. [Suspect]
     Active Substance: GABAPENTIN
     Indication: PAIN
     Dosage: 300 MG, 2X/DAY/(300MG ONE CAPSULE TWICE A DAY)
     Dates: start: 20160329

REACTIONS (1)
  - Drug ineffective for unapproved indication [Unknown]
